FAERS Safety Report 8924603 (Version 2)
Quarter: 2012Q4

REPORT INFORMATION
  Report Type: Report from Study
  Country: ES (occurrence: ES)
  Receive Date: 20121126
  Receipt Date: 20121203
  Transmission Date: 20130627
  Serious: Yes (Hospitalization)
  Sender: FDA-Public Use
  Company Number: ES-GLAXOSMITHKLINE-B0847260A

PATIENT
  Age: 51 Year
  Sex: Male

DRUGS (6)
  1. OFATUMUMAB [Suspect]
     Indication: CHRONIC LYMPHOCYTIC LEUKAEMIA
     Dosage: 6300MG cumulative dose
     Route: 042
     Dates: start: 20120802, end: 20120829
  2. CYCLOSPORINE [Concomitant]
     Indication: PROPHYLAXIS AGAINST GRAFT VERSUS HOST DISEASE
     Dosage: 125MG Twice per day
     Route: 048
  3. PANTOPRAZOL [Concomitant]
     Indication: PROPHYLAXIS
     Route: 048
  4. MAGNESIUM [Concomitant]
     Dates: start: 20120909
  5. ASTUDAL [Concomitant]
     Dosage: 5MG Twice per day
     Route: 048
  6. VALACICLOVIR [Concomitant]
     Dosage: 500MG Twice per day
     Route: 048
     Dates: end: 20121121

REACTIONS (1)
  - Graft versus host disease [Not Recovered/Not Resolved]
